FAERS Safety Report 17105601 (Version 2)
Quarter: 2020Q1

REPORT INFORMATION
  Report Type: Spontaneous
  Country: IT (occurrence: IT)
  Receive Date: 20191203
  Receipt Date: 20200113
  Transmission Date: 20200409
  Serious: Yes (Hospitalization)
  Sender: FDA-Public Use
  Company Number: IT-TEVA-2019-IT-1144863

PATIENT
  Age: 49 Year
  Sex: Male

DRUGS (2)
  1. CISPLATINO TEVA ITALIA 1 MG/ML CONCENTRATO PER SOLUZIONE PER INFUSIONE [Suspect]
     Active Substance: CISPLATIN
     Indication: BLADDER CANCER
     Dosage: 125 MG
     Route: 042
     Dates: start: 20190822, end: 20191017
  2. GEMCITABINA ACCORD 100 MG/ML CONCENTRATO PER SOLUZIONE PER INFUSIONE [Suspect]
     Active Substance: GEMCITABINE HYDROCHLORIDE
     Dosage: 1700 MG
     Route: 042
     Dates: start: 20190822, end: 20191031

REACTIONS (1)
  - Acute coronary syndrome [Recovered/Resolved]

NARRATIVE: CASE EVENT DATE: 20191103
